FAERS Safety Report 12452699 (Version 1)
Quarter: 2016Q2

REPORT INFORMATION
  Report Type: Spontaneous
  Country: US (occurrence: US)
  Receive Date: 20160609
  Receipt Date: 20160609
  Transmission Date: 20160815
  Serious: Yes (Death, Other)
  Sender: FDA-Public Use
  Company Number: US-FRESENIUS KABI-FK201603432

PATIENT
  Age: 51 Year
  Sex: Male

DRUGS (1)
  1. MORPHINE (MANUFACTURER UNKNOWN) [Suspect]
     Active Substance: MORPHINE
     Indication: PRODUCT USED FOR UNKNOWN INDICATION
     Route: 065

REACTIONS (3)
  - Overdose [Fatal]
  - Central nervous system lesion [Not Recovered/Not Resolved]
  - Toxicity to various agents [Fatal]
